FAERS Safety Report 26090696 (Version 1)
Quarter: 2025Q4

REPORT INFORMATION
  Report Type: Spontaneous
  Country: US (occurrence: US)
  Receive Date: 20251126
  Receipt Date: 20251126
  Transmission Date: 20260117
  Serious: No
  Sender: LEO PHARM
  Company Number: US-LEO Pharma-384470

PATIENT
  Sex: Male

DRUGS (1)
  1. ANZUPGO [Suspect]
     Active Substance: DELGOCITINIB
     Indication: Hand dermatitis
     Dosage: LOT NUMBER AND EXPIRY DATE WERE NOT PROVIDED.

REACTIONS (1)
  - Application site papules [Recovered/Resolved]
